FAERS Safety Report 7895574-2 (Version None)
Quarter: 2011Q4

REPORT INFORMATION
  Report Type: 
  Country: None (occurrence: None)
  Receive Date: 20111106
  Receipt Date: 20110829
  Transmission Date: 20120403
  Serious: No
  Sender: FDA-Public Use
  Company Number: US-AMGEN-USASP2011043953

PATIENT
  Age: 29 Year
  Sex: Male
  Weight: 77.098 kg

DRUGS (2)
  1. MULTIVITAMIN                       /00097801/ [Concomitant]
     Dosage: UNK
  2. ENBREL [Suspect]
     Indication: PRODUCT USED FOR UNKNOWN INDICATION
     Dosage: 50 MG, QWK

REACTIONS (2)
  - SINUS HEADACHE [None]
  - INSOMNIA [None]
